FAERS Safety Report 5591623-5 (Version None)
Quarter: 2008Q1

REPORT INFORMATION
  Report Type: 
  Country: None (occurrence: None)
  Receive Date: 20080115
  Receipt Date: 20080107
  Transmission Date: 20080703
  Serious: Yes (Death)
  Sender: FDA-Public Use
  Company Number: GB-ROCHE-540464

PATIENT
  Sex: Male

DRUGS (1)
  1. ROCEPHIN [Suspect]
     Route: 065

REACTIONS (3)
  - LOSS OF CONSCIOUSNESS [None]
  - MULTI-ORGAN FAILURE [None]
  - SEPTIC SHOCK [None]
